FAERS Safety Report 10567095 (Version 4)
Quarter: 2016Q2

REPORT INFORMATION
  Report Type: Spontaneous
  Country: SE (occurrence: SE)
  Receive Date: 20141105
  Receipt Date: 20160408
  Transmission Date: 20160815
  Serious: No
  Sender: FDA-Public Use
  Company Number: SE-PFIZER INC-2014238906

PATIENT
  Age: 52 Year
  Sex: Female

DRUGS (5)
  1. VALTREX [Concomitant]
     Active Substance: VALACYCLOVIR HYDROCHLORIDE
     Dosage: 500 MG, DAILY
  2. ESOMEPRAZOL /01479301/ [Concomitant]
     Active Substance: ESOMEPRAZOLE
     Indication: GASTRIC ULCER
  3. FOLACIN [Suspect]
     Active Substance: FOLIC ACID
     Dosage: UNK
     Route: 048
     Dates: start: 2014
  4. FOLACIN [Suspect]
     Active Substance: FOLIC ACID
     Dosage: 1 MG, (1 TABLET) DAILY
     Route: 048
     Dates: start: 2014, end: 201408
  5. ALVEDON [Concomitant]
     Active Substance: ACETAMINOPHEN
     Indication: PAIN
     Dosage: UNK

REACTIONS (1)
  - Psoriasis [Recovering/Resolving]

NARRATIVE: CASE EVENT DATE: 2014
